FAERS Safety Report 5488610-4 (Version None)
Quarter: 2007Q4

REPORT INFORMATION
  Report Type: 
  Country: None (occurrence: None)
  Receive Date: 20071001
  Receipt Date: 20061122
  Transmission Date: 20080405
  Serious: Yes (Other)
  Sender: FDA-Public Use
  Company Number: 200616236BWH

PATIENT
  Age: 31 Year
  Sex: Female

DRUGS (1)
  1. CIPRO [Suspect]
     Indication: DIARRHOEA INFECTIOUS
     Dosage: 500 MG, BID, ORAL
     Route: 048
     Dates: start: 20060801

REACTIONS (1)
  - TENDON RUPTURE [None]
